FAERS Safety Report 4561758-4 (Version None)
Quarter: 2005Q1

REPORT INFORMATION
  Report Type: 
  Country: None (occurrence: None)
  Receive Date: 20050125
  Receipt Date: 20050111
  Transmission Date: 20050727
  Serious: Yes (Other)
  Sender: FDA-Public Use
  Company Number: 2005010993

PATIENT
  Age: 50 Year
  Sex: Female

DRUGS (3)
  1. CELEBREX [Suspect]
     Indication: PAIN
     Dosage: 200 MG (200 MG, 1 IN 1 D), ORAL
     Route: 048
     Dates: start: 20040101, end: 20040101
  2. ALENDRONATE SODIUM [Concomitant]
  3. VITAMINS (VITAMINS) [Concomitant]

REACTIONS (1)
  - CEREBROVASCULAR ACCIDENT [None]
